FAERS Safety Report 11427509 (Version 1)
Quarter: 2015Q3

REPORT INFORMATION
  Report Type: Spontaneous
  Country: US (occurrence: None)
  Receive Date: 20150826
  Receipt Date: 20150826
  Transmission Date: 20151125
  Serious: Yes (Other)
  Sender: FDA-Public Use
  Company Number: KAD201508-002758

PATIENT
  Sex: Female

DRUGS (2)
  1. RIBAVIRIN (RIBAVIRIN) [Suspect]
     Active Substance: RIBAVIRIN
     Indication: HEPATITIS C
     Dates: start: 2007
  2. INTERFERON (INTERFERON) [Suspect]
     Active Substance: INTERFERON
     Indication: HEPATITIS C
     Dates: start: 2007

REACTIONS (1)
  - Cardiac operation [None]

NARRATIVE: CASE EVENT DATE: 2012
